FAERS Safety Report 10079244 (Version 1)
Quarter: 2014Q2

REPORT INFORMATION
  Report Type: Spontaneous
  Country: US (occurrence: US)
  Receive Date: 20140415
  Receipt Date: 20140415
  Transmission Date: 20141212
  Serious: Yes (Other)
  Sender: FDA-Public Use
  Company Number: US-PURDUE-USA-2014-0112809

PATIENT
  Age: 75 Year
  Sex: Male

DRUGS (1)
  1. OXYCONTIN (NDA 22-272) [Suspect]
     Indication: SPINAL COLUMN STENOSIS
     Dosage: 20 MG, SEE TEXT
     Route: 048

REACTIONS (2)
  - Macular degeneration [Unknown]
  - Visual acuity reduced [Not Recovered/Not Resolved]
